FAERS Safety Report 15026974 (Version 3)
Quarter: 2018Q3

REPORT INFORMATION
  Report Type: Report from Study
  Country: BR (occurrence: BR)
  Receive Date: 20180619
  Receipt Date: 20180824
  Transmission Date: 20181010
  Serious: Yes (Other)
  Sender: FDA-Public Use
  Company Number: BR-ROCHE-2140828

PATIENT
  Sex: Female
  Weight: 56 kg

DRUGS (9)
  1. OMEPRAZOLE. [Concomitant]
     Active Substance: OMEPRAZOLE
     Indication: GASTROOESOPHAGEAL REFLUX DISEASE
     Dosage: 1 DF, QD (STARTED MANY YEARS AGO)
     Route: 048
  2. SYMBICORT [Concomitant]
     Active Substance: BUDESONIDE\FORMOTEROL FUMARATE DIHYDRATE
     Indication: ASTHMA
     Dosage: 2 DF, QD
     Route: 055
     Dates: start: 2007
  3. ALENIA (BRAZIL) [Concomitant]
     Active Substance: BUDESONIDE\FORMOTEROL FUMARATE
     Indication: ASTHMA
     Dosage: 2 DF, QD
     Route: 055
     Dates: start: 2007
  4. XOLAIR [Suspect]
     Active Substance: OMALIZUMAB
     Indication: ASTHMA
     Dosage: 2 DF, QMO
     Route: 058
     Dates: start: 2007, end: 201706
  5. GLIFAGE [Concomitant]
     Active Substance: METFORMIN HYDROCHLORIDE
     Indication: DIABETES MELLITUS
     Dosage: 3 DF, QD
     Route: 048
  6. FORASEQ (BRAZIL) [Concomitant]
     Active Substance: BUDESONIDE\FORMOTEROL FUMARATE
     Indication: PRODUCT USED FOR UNKNOWN INDICATION
     Dosage: UNK
     Route: 065
     Dates: start: 2009
  7. OMEPRAZOLE. [Concomitant]
     Active Substance: OMEPRAZOLE
     Indication: GASTRITIS
     Route: 065
  8. ENALAPRIL [Concomitant]
     Active Substance: ENALAPRIL
     Indication: HYPERTENSION
     Dosage: 1 DF, QD (STARTED 4/5 YEARS AGO)
     Route: 048
  9. SIMVASTATIN. [Concomitant]
     Active Substance: SIMVASTATIN
     Indication: BLOOD CHOLESTEROL INCREASED
     Dosage: 1 DF, QD (STARTED 4/5 YEARS AGO)
     Route: 048

REACTIONS (14)
  - Bronchospasm [Recovering/Resolving]
  - Depressed mood [Not Recovered/Not Resolved]
  - Asthma [Recovering/Resolving]
  - Asthmatic crisis [Recovering/Resolving]
  - Malaise [Unknown]
  - Blood cholesterol abnormal [Recovering/Resolving]
  - Dyspnoea [Not Recovered/Not Resolved]
  - Blood glucose abnormal [Recovering/Resolving]
  - Dysphonia [Recovering/Resolving]
  - Hypersensitivity [Recovering/Resolving]
  - Blood immunoglobulin E decreased [Not Recovered/Not Resolved]
  - Cough [Recovering/Resolving]
  - Body height decreased [Recovering/Resolving]
  - Sensitivity to weather change [Unknown]
